FAERS Safety Report 4386078-2 (Version None)
Quarter: 2004Q2

REPORT INFORMATION
  Report Type: 
  Country: None (occurrence: None)
  Receive Date: 20040610
  Receipt Date: 20040413
  Transmission Date: 20050107
  Serious: Yes (Other)
  Sender: FDA-Public Use
  Company Number: US-JNJFOC-20040402901

PATIENT
  Age: 86 Year
  Sex: Female

DRUGS (20)
  1. NATRECOR [Suspect]
     Indication: CARDIAC FAILURE CONGESTIVE
     Dosage: 2 UG/KG, INTRAVENOUS ;  0.01 UG/KG/MIN, INTRAVENOUS
     Route: 042
     Dates: start: 20040412
  2. NATRECOR [Suspect]
     Indication: CARDIAC FAILURE CONGESTIVE
     Dosage: 2 UG/KG, INTRAVENOUS ;  0.01 UG/KG/MIN, INTRAVENOUS
     Route: 042
     Dates: start: 20040412
  3. FUROSEMIDE [Suspect]
     Indication: CARDIAC FAILURE CONGESTIVE
     Dosage: 80 MG, 1 IN 8 HOUR, INTRAVENOUS
     Route: 042
     Dates: start: 20040412
  4. ASPIRIN [Concomitant]
  5. HYDRALAZINE HCL TAB [Concomitant]
  6. ISMO [Concomitant]
  7. LOVENOX (HEPARIN-FRACTION, SODUM SALT) [Concomitant]
  8. TYLENOL [Concomitant]
  9. BENADRYL [Concomitant]
  10. PLAVIX [Concomitant]
  11. LOPRESSOR [Concomitant]
  12. MORPHINE SULFATE [Concomitant]
  13. INSULIN REGULAR (INSULIN) [Concomitant]
  14. NPH INSULIN [Concomitant]
  15. LANTUS INSULIN (INSULIN GLARGINE) [Concomitant]
  16. ZOCOR [Concomitant]
  17. DIOVAN [Concomitant]
  18. OSCAL D (LEKOVIT CA) [Concomitant]
  19. PROTONIX [Concomitant]
  20. LEVAQUIN [Concomitant]

REACTIONS (2)
  - ATRIAL FIBRILLATION [None]
  - MEDICATION ERROR [None]
